FAERS Safety Report 17849885 (Version 2)
Quarter: 2020Q3

REPORT INFORMATION
  Report Type: Report from Study
  Country: ES (occurrence: ES)
  Receive Date: 20200602
  Receipt Date: 20200704
  Transmission Date: 20201103
  Serious: Yes (Life-Threatening, Hospitalization)
  Sender: FDA-Public Use
  Company Number: ES-TEVA-2020-ES-1242722

PATIENT
  Age: 91 Year
  Sex: Female

DRUGS (6)
  1. OMEPRAZOL (2141A) [Suspect]
     Active Substance: OMEPRAZOLE
     Indication: PROPHYLAXIS
     Dosage: 20 MG
     Route: 048
  2. FUROSEMIDA (1615A) [Concomitant]
     Active Substance: FUROSEMIDE
     Dosage: 40 MG
     Route: 048
     Dates: start: 201405, end: 20170124
  3. MICONAZOL (1967A) [Interacting]
     Active Substance: MICONAZOLE
     Route: 061
     Dates: start: 20170120, end: 20170124
  4. SINTROM [Interacting]
     Active Substance: ACENOCOUMAROL
     Indication: ATRIAL FIBRILLATION
     Route: 048
     Dates: start: 201504, end: 20170124
  5. LEVOTIROXINA SODICA (1842SO) [Concomitant]
     Indication: HYPOTHYROIDISM
     Dosage: 75 GRAM
     Route: 048
  6. BISOPROLOL (2328A) [Concomitant]
     Active Substance: BISOPROLOL
     Indication: ATRIAL FIBRILLATION
     Dosage: 5 MG
     Route: 048
     Dates: start: 201406, end: 20170124

REACTIONS (2)
  - Retroperitoneal haematoma [Not Recovered/Not Resolved]
  - Drug interaction [Unknown]

NARRATIVE: CASE EVENT DATE: 20170123
